FAERS Safety Report 7783436-0 (Version None)
Quarter: 2011Q3

REPORT INFORMATION
  Report Type: 
  Country: None (occurrence: None)
  Receive Date: 20110928
  Receipt Date: 20110928
  Transmission Date: 20111222
  Serious: Yes (Hospitalization)
  Sender: FDA-Public Use
  Company Number: None

PATIENT
  Age: 92 Year
  Sex: Female
  Weight: 59.874 kg

DRUGS (2)
  1. LISINOPRIL AND HYDROCHLOROTHIAZIDE [Suspect]
     Indication: HYPERTENSION
     Dosage: 10-12.5 MG
  2. NORVASC [Concomitant]
     Indication: HYPERTENSION

REACTIONS (8)
  - HEMIPARESIS [None]
  - TONGUE DISORDER [None]
  - CONTUSION [None]
  - DYSPHAGIA [None]
  - AIR EMBOLISM [None]
  - DEPRESSED LEVEL OF CONSCIOUSNESS [None]
  - APHAGIA [None]
  - DECREASED APPETITE [None]
